FAERS Safety Report 11936875 (Version 2)
Quarter: 2016Q1

REPORT INFORMATION
  Report Type: Spontaneous
  Country: CR (occurrence: CR)
  Receive Date: 20160121
  Receipt Date: 20160204
  Transmission Date: 20160526
  Serious: Yes (Other)
  Sender: FDA-Public Use
  Company Number: PHHY2016CR007554

PATIENT
  Age: 80 Year
  Sex: Female
  Weight: 86 kg

DRUGS (3)
  1. METFORMIN [Concomitant]
     Active Substance: METFORMIN HYDROCHLORIDE
     Indication: PRODUCT USED FOR UNKNOWN INDICATION
     Dosage: 500 MG, QD
     Route: 048
  2. CO-DIOVAN [Suspect]
     Active Substance: HYDROCHLOROTHIAZIDE\VALSARTAN
     Indication: HYPERTENSION
     Dosage: 320/25 MG, QD (EVERY 24 HOURS)
     Route: 048
  3. DAFLON//DIOSMIN [Concomitant]
     Indication: PRODUCT USED FOR UNKNOWN INDICATION
     Dosage: 500 MG, QD (EVERY 24 HOURS)
     Route: 048

REACTIONS (8)
  - Speech disorder [Unknown]
  - Depression [Unknown]
  - Agnosia [Unknown]
  - Cerebrovascular accident [Unknown]
  - Hemiparesis [Unknown]
  - Blood pressure increased [Recovering/Resolving]
  - Nervous system disorder [Unknown]
  - Headache [Unknown]

NARRATIVE: CASE EVENT DATE: 201510
